FAERS Safety Report 8355326-6 (Version None)
Quarter: 2012Q2

REPORT INFORMATION
  Report Type: 
  Country: None (occurrence: None)
  Receive Date: 20120511
  Receipt Date: 20110610
  Transmission Date: 20120825
  Serious: No
  Sender: FDA-Public Use
  Company Number: US-TEVA-2011002967

PATIENT
  Sex: Male
  Weight: 95.34 kg

DRUGS (3)
  1. ANTIBIOTIC [Concomitant]
  2. NUVIGIL [Suspect]
     Indication: SLEEP APNOEA SYNDROME
     Dosage: 250 MILLIGRAM;
     Route: 048
  3. XANAX [Concomitant]

REACTIONS (1)
  - FEELING ABNORMAL [None]
